FAERS Safety Report 5775932-2 (Version None)
Quarter: 2008Q2

REPORT INFORMATION
  Report Type: 
  Country: None (occurrence: None)
  Receive Date: 20080617
  Receipt Date: 20080607
  Transmission Date: 20081010
  Serious: Yes (Hospitalization)
  Sender: FDA-Public Use
  Company Number: GB-ABBOTT-08P-167-0449657-00

PATIENT
  Sex: Female

DRUGS (14)
  1. TEVETEN [Suspect]
     Indication: HYPERTENSION
     Dosage: N
     Route: 048
     Dates: start: 20071101
  2. TEVETEN [Suspect]
     Route: 048
     Dates: start: 20010101, end: 20071101
  3. LEVOTHYROXINE SODIUM [Concomitant]
     Indication: HYPERTENSION
     Route: 065
  4. LEVOTHYROXINE SODIUM [Concomitant]
     Indication: DIABETES MELLITUS
  5. METFORMIN [Concomitant]
     Indication: HYPERTENSION
     Route: 048
  6. METFORMIN [Concomitant]
     Indication: DIABETES MELLITUS
  7. ATORVASTATIN [Concomitant]
     Indication: HYPERTENSION
     Route: 048
  8. ATORVASTATIN [Concomitant]
     Indication: DIABETES MELLITUS
  9. INDAPAMIDE [Concomitant]
     Indication: HYPERTENSION
     Route: 048
  10. INDAPAMIDE [Concomitant]
     Indication: DIABETES MELLITUS
  11. NOVOLOG MIX 70/30 [Concomitant]
     Indication: HYPERTENSION
     Route: 065
  12. NOVOLOG MIX 70/30 [Concomitant]
     Indication: DIABETES MELLITUS
  13. EZETIMIBE [Concomitant]
     Indication: HYPERTENSION
     Route: 065
  14. EZETIMIBE [Concomitant]
     Indication: DIABETES MELLITUS

REACTIONS (4)
  - CHOKING SENSATION [None]
  - COUGH [None]
  - DYSPHONIA [None]
  - PHARYNGITIS [None]
